FAERS Safety Report 10221809 (Version 1)
Quarter: 2014Q2

REPORT INFORMATION
  Report Type: Spontaneous
  Country: US (occurrence: None)
  Receive Date: 20140605
  Receipt Date: 20140605
  Transmission Date: 20141212
  Serious: Yes (Hospitalization)
  Sender: FDA-Public Use
  Company Number: None

PATIENT
  Age: 71 Year
  Sex: Female
  Weight: 101.7 kg

DRUGS (6)
  1. CYTARABINE [Suspect]
     Dates: end: 20131128
  2. DAUNORUBICIN [Suspect]
     Dates: end: 20131129
  3. ASPIRIN [Concomitant]
  4. CALCIUM WITH VIT D [Concomitant]
  5. IBUPROFEN [Concomitant]
  6. LORATADINE [Concomitant]

REACTIONS (1)
  - Blood calcium abnormal [None]
